FAERS Safety Report 7951582-4 (Version None)
Quarter: 2011Q4

REPORT INFORMATION
  Report Type: 
  Country: None (occurrence: None)
  Receive Date: 20111201
  Receipt Date: 20111128
  Transmission Date: 20120403
  Serious: Yes (Hospitalization, Other)
  Sender: FDA-Public Use
  Company Number: JP-BAYER-2011-110933

PATIENT
  Age: 71 Year
  Sex: Male
  Weight: 50 kg

DRUGS (7)
  1. ASPIRIN [Suspect]
     Indication: THROMBOCYTOSIS
     Dosage: DAILY DOSE 100 MG
     Route: 048
     Dates: start: 20110423, end: 20110517
  2. FERROUS CITRATE [Concomitant]
     Dosage: 50 MG, UNK
     Route: 048
  3. BISOPROLOL FUMARATE [Concomitant]
     Dosage: 2.5 MG, UNK
     Route: 048
  4. BERIZYM [CELLULASE,DIASTASE,LIPASE,PANCREATIN] [Concomitant]
     Dosage: 3 G, UNK
     Route: 048
  5. WARFARIN SODIUM [Concomitant]
     Dosage: 4.5 MG, UNK
     Route: 048
  6. ACETAMINOPHEN [Concomitant]
     Dosage: 200 MG, PRN
     Route: 048
  7. PROPAFENONE HYDROCHLORIDE [Concomitant]
     Dosage: 450 MG, UNK
     Route: 048

REACTIONS (1)
  - JEJUNAL ULCER PERFORATION [None]
